FAERS Safety Report 18350593 (Version 1)
Quarter: 2020Q4

REPORT INFORMATION
  Report Type: Spontaneous
  Country: JP (occurrence: JP)
  Receive Date: 20201006
  Receipt Date: 20201006
  Transmission Date: 20210114
  Serious: Yes (Other)
  Sender: FDA-Public Use
  Company Number: JP-AMGEN-JPNSP2020159145

PATIENT

DRUGS (1)
  1. ROMOSOZUMAB [Suspect]
     Active Substance: ROMOSOZUMAB
     Indication: OSTEOPOROSIS
     Dosage: UNK
     Route: 065

REACTIONS (3)
  - Adjusted calcium decreased [Unknown]
  - Injection site pain [Unknown]
  - Renal impairment [Unknown]
